FAERS Safety Report 19571257 (Version 2)
Quarter: 2021Q3

REPORT INFORMATION
  Report Type: Spontaneous
  Country: US (occurrence: US)
  Receive Date: 20210715
  Receipt Date: 20210726
  Transmission Date: 20211014
  Serious: Yes (Hospitalization, Other)
  Sender: FDA-Public Use
  Company Number: US-TEVA-2021-US-1931353

PATIENT
  Age: 54 Year
  Sex: Male

DRUGS (2)
  1. SOTALOL. [Concomitant]
     Active Substance: SOTALOL
     Indication: ATRIAL FIBRILLATION
     Route: 065
  2. AMIODARONE [Suspect]
     Active Substance: AMIODARONE
     Indication: ATRIAL FIBRILLATION
     Dosage: 700 MILLIGRAM DAILY; LONG TERM THERAPY
     Route: 065

REACTIONS (7)
  - Pneumothorax [Recovered/Resolved]
  - Pulmonary toxicity [Recovered/Resolved]
  - Pneumonia lipoid [Recovered/Resolved]
  - Pleural effusion [Recovered/Resolved]
  - Organising pneumonia [Recovered/Resolved]
  - Weight decreased [Unknown]
  - Haemoptysis [Recovered/Resolved]
